FAERS Safety Report 12739504 (Version 2)
Quarter: 2016Q3

REPORT INFORMATION
  Report Type: Spontaneous
  Country: DK (occurrence: DK)
  Receive Date: 20160913
  Receipt Date: 20160929
  Transmission Date: 20161109
  Serious: Yes (Other)
  Sender: FDA-Public Use
  Company Number: DK-TEVA-624797ISR

PATIENT
  Age: 35 Year
  Sex: Male

DRUGS (2)
  1. MALFIN [Suspect]
     Active Substance: MORPHINE SULFATE
     Indication: PAIN IN EXTREMITY
     Dates: start: 20140820
  2. MALFIN [Suspect]
     Active Substance: MORPHINE SULFATE
     Indication: BACK PAIN

REACTIONS (15)
  - Tooth injury [Unknown]
  - Dizziness [Not Recovered/Not Resolved]
  - Headache [Not Recovered/Not Resolved]
  - Confusional state [Not Recovered/Not Resolved]
  - Jaw fracture [Unknown]
  - Hypoacusis [Not Recovered/Not Resolved]
  - Ear injury [Unknown]
  - Syncope [Recovered/Resolved]
  - Facial pain [Not Recovered/Not Resolved]
  - Toothache [Not Recovered/Not Resolved]
  - Concussion [Unknown]
  - Ear pain [Not Recovered/Not Resolved]
  - Face injury [Unknown]
  - Fall [Unknown]
  - Muscle tightness [Not Recovered/Not Resolved]

NARRATIVE: CASE EVENT DATE: 20140821
